FAERS Safety Report 8479083-8 (Version None)
Quarter: 2012Q2

REPORT INFORMATION
  Report Type: 
  Country: None (occurrence: None)
  Receive Date: 20120629
  Receipt Date: 20120620
  Transmission Date: 20120825
  Serious: Yes (Other)
  Sender: FDA-Public Use
  Company Number: US-BRISTOL-MYERS SQUIBB COMPANY-16700858

PATIENT
  Age: 64 Year
  Sex: Female
  Weight: 57 kg

DRUGS (4)
  1. ASPIRIN [Concomitant]
  2. LISINOPRIL [Concomitant]
  3. KOMBIGLYZE XR [Suspect]
     Dosage: 1 DF = 1000/2.5
     Dates: start: 20120614
  4. LIPITOR [Concomitant]

REACTIONS (1)
  - ANGIOEDEMA [None]
